FAERS Safety Report 16993058 (Version 7)
Quarter: 2020Q3

REPORT INFORMATION
  Report Type: Spontaneous
  Country: US (occurrence: US)
  Receive Date: 20191105
  Receipt Date: 20200721
  Transmission Date: 20201102
  Serious: Yes (Death, Hospitalization, Other)
  Sender: FDA-Public Use
  Company Number: US-AMNEAL PHARMACEUTICALS-2019-IPXL-01026

PATIENT
  Sex: Female
  Weight: 49 kg

DRUGS (4)
  1. RYTARY [Suspect]
     Active Substance: CARBIDOPA\LEVODOPA
     Dosage: 36.25?145 MG, 2 CAPSULES, 4X/DAY
     Route: 048
     Dates: end: 20190305
  2. RYTARY [Suspect]
     Active Substance: CARBIDOPA\LEVODOPA
     Dosage: 48.75?195 MG, 1 CAPSULES, 4X/DAY (AT 6AM, 6PM, BETWEEN MIDNIGHT AND 3AM)
     Route: 048
     Dates: end: 20190305
  3. RYTARY [Suspect]
     Active Substance: CARBIDOPA\LEVODOPA
     Indication: PARKINSON^S DISEASE
     Dosage: 36.25?145 MG, 2 CAPSULES, 4X/DAY
     Route: 048
     Dates: end: 20200127
  4. RYTARY [Suspect]
     Active Substance: CARBIDOPA\LEVODOPA
     Dosage: 48.75?195 MG, 1 CAPSULES, 4X/DAY (AT 6AM, 6PM, BETWEEN MIDNIGHT AND 3AM)
     Route: 048

REACTIONS (6)
  - Adverse event [Fatal]
  - Tremor [Unknown]
  - Weight decreased [Not Recovered/Not Resolved]
  - Hypotension [Unknown]
  - Product dose omission issue [Unknown]
  - Therapy cessation [Unknown]
